FAERS Safety Report 9112692 (Version 1)
Quarter: 2013Q1

REPORT INFORMATION
  Report Type: Spontaneous
  Country: TR (occurrence: TR)
  Receive Date: 20130211
  Receipt Date: 20130211
  Transmission Date: 20140127
  Serious: Yes (Other)
  Sender: FDA-Public Use
  Company Number: TR-WATSON-2013-01674

PATIENT
  Age: 35 Year
  Sex: Male

DRUGS (2)
  1. LIDOCAINE HYDROCHLORIDE (WATSON LABORATORIES) [Suspect]
     Indication: LOCAL ANAESTHESIA
     Dosage: 2% 1:100,000 SOLUTION WITH EPINEPHRINE, LESS THAN 2 ML
     Route: 050
  2. EPINEPHRINE [Suspect]
     Indication: LOCAL ANAESTHESIA
     Dosage: 1:100,000 SOLUTION WITH LIDOCAINE, LESS THAN 2 ML
     Route: 050

REACTIONS (4)
  - Blindness transient [Recovered/Resolved]
  - Ophthalmoplegia [Recovered/Resolved]
  - Pallor [Recovered/Resolved]
  - Eye pain [Recovered/Resolved]
